FAERS Safety Report 12549218 (Version 1)
Quarter: 2016Q3

REPORT INFORMATION
  Report Type: Spontaneous
  Country: CN (occurrence: CN)
  Receive Date: 20160712
  Receipt Date: 20160712
  Transmission Date: 20161109
  Serious: Yes (Other)
  Sender: FDA-Public Use
  Company Number: CN-PFIZER INC-2016336151

PATIENT
  Age: 42 Year
  Sex: Female
  Weight: 51 kg

DRUGS (2)
  1. VFEND [Suspect]
     Active Substance: VORICONAZOLE
     Indication: PULMONARY MYCOSIS
     Dosage: 400 MG, 2X/DAY
     Route: 048
     Dates: start: 20160102, end: 20160102
  2. VFEND [Suspect]
     Active Substance: VORICONAZOLE
     Dosage: 200 MG, 2X/DAY
     Route: 048
     Dates: start: 20160103, end: 20160202

REACTIONS (3)
  - Abscess oral [Unknown]
  - Mouth ulceration [Unknown]
  - Nail infection [Unknown]

NARRATIVE: CASE EVENT DATE: 20160202
